FAERS Safety Report 24783132 (Version 2)
Quarter: 2025Q1

REPORT INFORMATION
  Report Type: Spontaneous
  Country: JP (occurrence: JP)
  Receive Date: 20241227
  Receipt Date: 20250219
  Transmission Date: 20250408
  Serious: Yes (Hospitalization)
  Sender: BAYER HEALTHCARE PHARMACEUTICALS INC.
  Company Number: JP-BAYER-2024A182922

PATIENT
  Age: 2 Decade
  Sex: Female

DRUGS (8)
  1. ADEMPAS [Suspect]
     Active Substance: RIOCIGUAT
     Route: 048
  2. MACITENTAN [Concomitant]
     Active Substance: MACITENTAN
  3. TREPROSTINIL [Concomitant]
     Active Substance: TREPROSTINIL
  4. EPOPROSTENOL [Concomitant]
     Active Substance: EPOPROSTENOL
     Route: 041
  5. EPOPROSTENOL [Concomitant]
     Active Substance: EPOPROSTENOL
  6. SILDENAFIL [Concomitant]
     Active Substance: SILDENAFIL
  7. AMBRISENTAN [Concomitant]
     Active Substance: AMBRISENTAN
  8. TADALAFIL [Concomitant]
     Active Substance: TADALAFIL

REACTIONS (6)
  - Thyrotoxic crisis [Recovering/Resolving]
  - Headache [Recovering/Resolving]
  - Nausea [Recovering/Resolving]
  - Musculoskeletal stiffness [None]
  - Device occlusion [None]
  - Treatment noncompliance [None]

NARRATIVE: CASE EVENT DATE: 20150101
